FAERS Safety Report 4646936-8 (Version None)
Quarter: 2005Q2

REPORT INFORMATION
  Report Type: 
  Country: None (occurrence: None)
  Receive Date: 20050331
  Receipt Date: 20050214
  Transmission Date: 20051028
  Serious: No
  Sender: FDA-Public Use
  Company Number: 05P-163-0290650-00

PATIENT
  Age: 71 Year
  Sex: Female
  Weight: 72.5755 kg

DRUGS (16)
  1. HUMIRA [Suspect]
     Indication: RHEUMATOID ARTHRITIS
     Dosage: 40 MG, 1 IN 2 WK, SUBCUTANEOUS
     Route: 058
     Dates: start: 20040601
  2. METHOTREXATE SODIUM [Concomitant]
  3. PREDNISONE [Concomitant]
  4. LEVOTHYROXINE SODIUM [Concomitant]
  5. IRBESARTAN [Concomitant]
  6. METOPROLOL SUCCINATE [Concomitant]
  7. POTASSIUM CHLORIDE [Concomitant]
  8. FOLIC ACID [Concomitant]
  9. ASCORBIC ACID [Concomitant]
  10. CYANOCOBALAMIN [Concomitant]
  11. PYRIDOXINE HYDROCHLORIDE [Concomitant]
  12. CALCITONIN-SALMON [Concomitant]
  13. CANDY CALCIUM-VIACTIC [Concomitant]
  14. TERAZOSIN [Concomitant]
  15. CADUTE [Concomitant]
  16. FUROSEMIDE [Concomitant]

REACTIONS (5)
  - DRUG EFFECT DECREASED [None]
  - INJECTION SITE ERYTHEMA [None]
  - INJECTION SITE IRRITATION [None]
  - MUSCULOSKELETAL STIFFNESS [None]
  - PRURITUS [None]
